FAERS Safety Report 7747444-8 (Version None)
Quarter: 2011Q3

REPORT INFORMATION
  Report Type: 
  Country: None (occurrence: None)
  Receive Date: 20110909
  Receipt Date: 20110825
  Transmission Date: 20111222
  Serious: Yes (Other)
  Sender: FDA-Public Use
  Company Number: 019045

PATIENT
  Age: 79 Year
  Sex: Male

DRUGS (7)
  1. PEGAPTANIB SODIUM (PEGAPTANIB SODIUM) UNKNOWN [Suspect]
     Indication: RETINAL VEIN OCCLUSION
     Dosage: 0.3 MG, INTRAOCULAR
     Route: 031
     Dates: start: 20101116, end: 20101116
  2. PEGAPTANIB SODIUM (PEGAPTANIB SODIUM) UNKNOWN [Suspect]
     Indication: RETINAL VEIN OCCLUSION
     Dosage: 0.3 MG, INTRAOCULAR
     Route: 031
     Dates: start: 20110104, end: 20110104
  3. LEVOFLOXACIN [Suspect]
     Indication: INFECTION PROPHYLAXIS
     Dosage: INTRAOCULAR
     Route: 031
     Dates: start: 20110101, end: 20110107
  4. LEVOFLOXACIN [Suspect]
     Indication: INFECTION PROPHYLAXIS
     Dosage: INTRAOCULAR
     Route: 031
     Dates: start: 20101113, end: 20101120
  5. POLYVINYLALCOHOL/IODINE (IODINE, POLYVINYL ALCOHOL) [Suspect]
  6. AVASTIN [Concomitant]
  7. BENOXIL (OXYBUPROCAINE) [Suspect]

REACTIONS (1)
  - OCULAR HYPERTENSION [None]
